FAERS Safety Report 5236743-X (Version None)
Quarter: 2007Q1

REPORT INFORMATION
  Report Type: 
  Country: None (occurrence: None)
  Receive Date: 20070213
  Receipt Date: 20070131
  Transmission Date: 20070707
  Serious: Yes (Other)
  Sender: FDA-Public Use
  Company Number: PHEH2006US15508

PATIENT
  Age: 42 Year
  Sex: Male
  Weight: 82.086 kg

DRUGS (1)
  1. CLOZARIL [Suspect]
     Indication: SCHIZOPHRENIA
     Dosage: 200 MG, BID
     Route: 048
     Dates: start: 20010703

REACTIONS (10)
  - ANAEMIA [None]
  - BLOOD GLUCOSE INCREASED [None]
  - BLOOD SMEAR TEST ABNORMAL [None]
  - HAEMOGLOBIN DECREASED [None]
  - LEUKAEMIA [None]
  - MONOCYTE COUNT INCREASED [None]
  - NEUTROPHIL PELGER-HUET ANOMALY PRESENT [None]
  - PLATELET DISORDER [None]
  - RED BLOOD CELL COUNT DECREASED [None]
  - RED CELL DISTRIBUTION WIDTH INCREASED [None]
